FAERS Safety Report 5839963-6 (Version None)
Quarter: 2008Q3

REPORT INFORMATION
  Report Type: 
  Country: None (occurrence: None)
  Receive Date: 20080807
  Receipt Date: 20080807
  Transmission Date: 20090109
  Serious: Yes (Hospitalization)
  Sender: FDA-Public Use
  Company Number: None

PATIENT
  Sex: Male
  Weight: 73.5281 kg

DRUGS (2)
  1. CISPLATIN [Suspect]
     Indication: SQUAMOUS CELL CARCINOMA
     Dosage: 327.25 MG Q21 DAYS IVPB
     Route: 042
     Dates: start: 20080512, end: 20080806
  2. PACLITAXEL [Suspect]
     Indication: SQUAMOUS CELL CARCINOMA
     Dosage: 140.25 MG Q21 DAY IVPB
     Route: 042
     Dates: start: 20080512, end: 20080806

REACTIONS (1)
  - BARIUM SWALLOW ABNORMAL [None]
